FAERS Safety Report 9857114 (Version 1)
Quarter: 2014Q1

REPORT INFORMATION
  Report Type: Report from Study
  Country: ES (occurrence: ES)
  Receive Date: 20140130
  Receipt Date: 20140130
  Transmission Date: 20141002
  Serious: Yes (Other)
  Sender: FDA-Public Use
  Company Number: ES-VERTEX PHARMACEUTICALS INC-2014-000449

PATIENT
  Age: 58 Year
  Sex: Female

DRUGS (1)
  1. TELAPREVIR [Suspect]
     Indication: HEPATITIS C

REACTIONS (2)
  - Dyspnoea [Not Recovered/Not Resolved]
  - Anaemia [Not Recovered/Not Resolved]
